FAERS Safety Report 22680596 (Version 3)
Quarter: 2023Q4

REPORT INFORMATION
  Report Type: Spontaneous
  Country: JP (occurrence: JP)
  Receive Date: 20230707
  Receipt Date: 20231221
  Transmission Date: 20240109
  Serious: Yes (Death, Other)
  Sender: FDA-Public Use
  Company Number: JP-GSKJP-JP2022JPN097994AA

PATIENT

DRUGS (42)
  1. DAPRODUSTAT [Suspect]
     Active Substance: DAPRODUSTAT
     Dosage: 2 MG, 1D, AFTER BREAKFAST
     Route: 048
     Dates: start: 20211213
  2. TRIAMCINOLONE ACETONIDE [Concomitant]
     Active Substance: TRIAMCINOLONE ACETONIDE
     Dosage: UNK, TID
     Route: 002
     Dates: start: 20211213
  3. SULFAMETHOXAZOLE\TRIMETHOPRIM [Concomitant]
     Active Substance: SULFAMETHOXAZOLE\TRIMETHOPRIM
     Dosage: 1 DF, 1D, AFTER BREAKFAST, TAKE ON MONDAY
     Dates: start: 20211015, end: 20211229
  4. BIO-THREE [Concomitant]
     Active Substance: HERBALS
     Dosage: 1 DF, TID, AFTER BREAKFAST, LUNCH AND DINNER
     Dates: start: 20211217, end: 20220101
  5. Flomox [Concomitant]
     Dosage: 100MG, TID, AFTER BREAKFAST, LUNCH AND DINNER
     Dates: start: 20211225, end: 20211230
  6. TRIAMCINOLONE [Concomitant]
     Active Substance: TRIAMCINOLONE
     Dosage: UNK, BID
     Route: 002
     Dates: start: 20211223
  7. TACROLIMUS [Concomitant]
     Active Substance: TACROLIMUS
     Dosage: 5MG, 1D, BEFORE BREAKFAST
     Dates: start: 20211015
  8. TACROLIMUS [Concomitant]
     Active Substance: TACROLIMUS
     Dosage: 1MG, 1D, BEFORE BREAKFAST
     Dates: start: 20211127
  9. TACROLIMUS [Concomitant]
     Active Substance: TACROLIMUS
     Dosage: 8MG, 1D, BEFORE BREAKFAST
     Dates: start: 20211201
  10. TACROLIMUS [Concomitant]
     Active Substance: TACROLIMUS
     Dosage: 7MG, 1D, BEFORE BREAKFAST
     Dates: start: 20211202
  11. TACROLIMUS [Concomitant]
     Active Substance: TACROLIMUS
     Dosage: 4MG, 1D, BEFORE BREAKFAST
     Dates: start: 20211209
  12. TACROLIMUS [Concomitant]
     Active Substance: TACROLIMUS
     Dosage: 1MG, 1D, BEFORE BREAKFAST
     Dates: start: 20211216
  13. TACROLIMUS [Concomitant]
     Active Substance: TACROLIMUS
     Dosage: 0.5MG, 1D, BEFORE BREAKFAST
     Dates: start: 20211221
  14. TACROLIMUS [Concomitant]
     Active Substance: TACROLIMUS
     Dosage: 1MG, 1D, BEFORE BREAKFAST
     Dates: start: 20211222
  15. TACROLIMUS [Concomitant]
     Active Substance: TACROLIMUS
     Dosage: 2.5MG, 1D, BEFORE BREAKFAST
     Dates: start: 20211223, end: 20220110
  16. CERTICAN [Concomitant]
     Active Substance: EVEROLIMUS
     Dosage: 0.75 MG, BID, BEFORE BREAKFAST AND DINNER
     Dates: start: 20211201
  17. CERTICAN [Concomitant]
     Active Substance: EVEROLIMUS
     Dosage: 0.25MG, BID, BEFORE BREAKFAST AND DINNER
     Dates: start: 20211209, end: 20220110
  18. NEXIUM [Concomitant]
     Active Substance: ESOMEPRAZOLE MAGNESIUM
     Dosage: 20MG, 1D, AFTER BREAKFAST
     Dates: start: 20211015, end: 20220110
  19. MEDROL [Concomitant]
     Active Substance: METHYLPREDNISOLONE
     Dosage: 4MG, 1D, AFTER BREAKFAST
     Dates: start: 20211015
  20. MEDROL [Concomitant]
     Active Substance: METHYLPREDNISOLONE
     Dosage: 8MG, 1D, AFTER BREAKFAST, STEROID TAPER
     Dates: start: 20211129
  21. MEDROL [Concomitant]
     Active Substance: METHYLPREDNISOLONE
     Dosage: 4MG, 1D, AFTER BREAKFAST
     Dates: start: 20211201, end: 20220110
  22. TAMSULOSIN HYDROCHLORIDE [Concomitant]
     Active Substance: TAMSULOSIN HYDROCHLORIDE
     Dosage: 0.1MG, BID, AFTER BREAKFAST AND DINNER
     Dates: start: 20211015, end: 20220110
  23. FLUVASTATIN SODIUM [Concomitant]
     Active Substance: FLUVASTATIN SODIUM
     Dosage: 20MG, 1D, AFTER DINNER
     Dates: start: 20211015, end: 20220110
  24. FEBUXOSTAT [Concomitant]
     Active Substance: FEBUXOSTAT
     Dosage: 10MG, 1D, AFTER BREAKFAST
     Dates: start: 20211015, end: 20220110
  25. FERROUS SULFATE [Concomitant]
     Active Substance: FERROUS SULFATE
     Dosage: 105 MG, 1D, AFTER BREAKFAST
     Dates: start: 20211015, end: 20220110
  26. ZINC [Concomitant]
     Active Substance: PYRITHIONE ZINC\ZINC\ZINC CHLORIDE
     Dosage: 50 MG, BID, AFTER BREAKFAST AND DINNER
     Dates: start: 20211201, end: 20220110
  27. FLUCONAZOLE [Concomitant]
     Active Substance: FLUCONAZOLE
     Dosage: 400MG, 1D, AFTER BREAKFAST
     Dates: start: 20211201
  28. FLUCONAZOLE [Concomitant]
     Active Substance: FLUCONAZOLE
     Dosage: 200MG, 1D, AFTER BREAKFAST
     Dates: start: 20211216, end: 20220110
  29. KETOPROFEN [Concomitant]
     Active Substance: KETOPROFEN
     Dosage: UNK, 1D
     Dates: start: 20211219
  30. VANCOMYCIN HYDROCHLORIDE [Concomitant]
     Active Substance: VANCOMYCIN HYDROCHLORIDE
     Dosage: UNK, QID, AFTER BREAKFAST, LUNCH AND DINNER, BEFORE SLEEP
     Dates: start: 20211217, end: 20211223
  31. LOKELMA [Concomitant]
     Active Substance: SODIUM ZIRCONIUM CYCLOSILICATE
     Dosage: 5 G, 1D, AFTER BREAKFAST
     Dates: start: 20211216, end: 20211223
  32. SODIUM GUALENATE MONOHYDRATE [Concomitant]
     Active Substance: SODIUM GUALENATE MONOHYDRATE
     Dosage: UNK, TID
     Route: 049
     Dates: start: 20211213
  33. PETROLATUM [Concomitant]
     Active Substance: PETROLATUM
     Dosage: UNK
     Dates: start: 20211113
  34. SODIUM PICOSULFATE [Concomitant]
     Active Substance: SODIUM PICOSULFATE
     Dosage: UNK, PRN(WHEN CONSTIPATED)
     Dates: start: 20211112
  35. RISPERDAL [Concomitant]
     Active Substance: RISPERIDONE
     Dosage: 0.5 ML, PRN(WHEN UNREST)
     Dates: start: 20211112
  36. CELLCEPT [Concomitant]
     Active Substance: MYCOPHENOLATE MOFETIL
     Dosage: 750 MG, BID, AFTER BREAKFAST AND DINNER
     Dates: start: 20211015, end: 20211211
  37. ASENAPINE MALEATE [Concomitant]
     Active Substance: ASENAPINE MALEATE
     Dosage: 5 MG, PRN(WHEN UNREST)
     Dates: start: 20211112
  38. TIMOLOL MALEATE [Concomitant]
     Active Substance: TIMOLOL MALEATE
     Dosage: UNK, 1D, MORNING, LEFT EYE
     Route: 047
     Dates: start: 20211129
  39. LATANOPROST [Concomitant]
     Active Substance: LATANOPROST
     Dosage: UNK, 1D, BEFORE BATHING, LEFT EYE
     Route: 047
     Dates: start: 20211129
  40. BROMFENAC SODIUM [Concomitant]
     Active Substance: BROMFENAC SODIUM
     Dosage: UNK, BID, BOTH EYES
     Dates: start: 20211129
  41. BROMFENAC SODIUM [Concomitant]
     Active Substance: BROMFENAC SODIUM
     Dosage: UNK, BID, BOTH EYES
     Dates: start: 20211129
  42. BENZETHONIUM CHLORIDE [Concomitant]
     Active Substance: BENZETHONIUM CHLORIDE
     Dosage: UNK
     Route: 049
     Dates: start: 20211202, end: 20211213

REACTIONS (6)
  - Embolism [Recovered/Resolved]
  - Deep vein thrombosis [Unknown]
  - Renal failure [Fatal]
  - Infection [Unknown]
  - General physical health deterioration [Unknown]
  - Rest regimen [Unknown]

NARRATIVE: CASE EVENT DATE: 20220225
